FAERS Safety Report 6100663-9 (Version None)
Quarter: 2009Q1

REPORT INFORMATION
  Report Type: 
  Country: None (occurrence: None)
  Receive Date: 20090303
  Receipt Date: 20090203
  Transmission Date: 20090719
  Serious: Yes (Other)
  Sender: FDA-Public Use
  Company Number: GB-PFIZER INC-2008031892

PATIENT
  Age: 18 Year
  Sex: Female
  Weight: 49 kg

DRUGS (1)
  1. CHAMPIX [Suspect]
     Indication: SMOKING CESSATION THERAPY
     Route: 048
     Dates: start: 20080331, end: 20080404

REACTIONS (5)
  - HEART RATE INCREASED [None]
  - HYPERHIDROSIS [None]
  - HYPERVENTILATION [None]
  - PANIC ATTACK [None]
  - TREMOR [None]
